FAERS Safety Report 11720722 (Version 2)
Quarter: 2016Q1

REPORT INFORMATION
  Report Type: Spontaneous
  Country: BE (occurrence: BE)
  Receive Date: 20151110
  Receipt Date: 20160128
  Transmission Date: 20160525
  Serious: Yes (Death, Life-Threatening, Other)
  Sender: FDA-Public Use
  Company Number: BE-SA-2015SA179256

PATIENT
  Age: 32 Year
  Sex: Female

DRUGS (13)
  1. MYCOPHENOLATE MOFETIL. [Suspect]
     Active Substance: MYCOPHENOLATE MOFETIL
     Indication: IMMUNOSUPPRESSION
     Route: 065
  2. RANITIDINE [Concomitant]
     Active Substance: RANITIDINE\RANITIDINE HYDROCHLORIDE
     Route: 065
  3. METHYLPREDNISOLONE. [Suspect]
     Active Substance: METHYLPREDNISOLONE
     Indication: IMMUNOSUPPRESSANT DRUG THERAPY
     Route: 065
  4. THYMOGLOBULIN [Suspect]
     Active Substance: LAPINE T-LYMPHOCYTE IMMUNE GLOBULIN
     Indication: KIDNEY TRANSPLANT REJECTION
     Route: 065
  5. MYCOPHENOLATE MOFETIL. [Suspect]
     Active Substance: MYCOPHENOLATE MOFETIL
     Indication: IMMUNOSUPPRESSION
     Route: 065
  6. CYCLOPHOSPHAMIDE. [Suspect]
     Active Substance: CYCLOPHOSPHAMIDE
     Indication: T-CELL LYMPHOMA STAGE IV
     Route: 065
  7. TRIMETHOPRIM/SULFAMETHOXAZOLE [Concomitant]
     Dosage: 3 X WEEK
     Route: 065
  8. DOXORUBICIN [Suspect]
     Active Substance: DOXORUBICIN
     Indication: T-CELL LYMPHOMA
     Route: 065
  9. METRONIDAZOLE. [Concomitant]
     Active Substance: METRONIDAZOLE
  10. TACROLIMUS. [Suspect]
     Active Substance: TACROLIMUS
     Indication: IMMUNOSUPPRESSION
     Route: 065
  11. ACETYLSALICYLIC ACID [Concomitant]
     Active Substance: ASPIRIN
     Route: 065
  12. FLUCONAZOLE. [Concomitant]
     Active Substance: FLUCONAZOLE
  13. RITUXIMAB [Suspect]
     Active Substance: RITUXIMAB
     Indication: T-CELL LYMPHOMA STAGE IV
     Route: 065

REACTIONS (26)
  - Pyrexia [Fatal]
  - Clostridium difficile infection [Unknown]
  - Diarrhoea [Unknown]
  - Peritonitis [Unknown]
  - Tumour necrosis [Unknown]
  - Dysphagia [Fatal]
  - Cholestasis [Fatal]
  - Blood alkaline phosphatase increased [Fatal]
  - Intestinal perforation [Unknown]
  - Chills [Unknown]
  - Sepsis [Fatal]
  - Renal impairment [Unknown]
  - Pyrexia [Unknown]
  - Bronchopulmonary aspergillosis [Unknown]
  - Hypoalbuminaemia [Fatal]
  - Gamma-glutamyltransferase increased [Fatal]
  - Arthralgia [Fatal]
  - Abdominal pain [Unknown]
  - Post transplant lymphoproliferative disorder [Fatal]
  - Oropharyngeal pain [Fatal]
  - Neutropenia [Fatal]
  - Systemic candida [Unknown]
  - Fungal infection [Unknown]
  - Abdominal pain [Fatal]
  - C-reactive protein increased [Fatal]
  - Blood lactate dehydrogenase increased [Fatal]
